FAERS Safety Report 7567990-X (Version None)
Quarter: 2011Q2

REPORT INFORMATION
  Report Type: 
  Country: None (occurrence: None)
  Receive Date: 20110623
  Receipt Date: 20110620
  Transmission Date: 20111010
  Serious: Yes (Hospitalization, Other)
  Sender: FDA-Public Use
  Company Number: FR-BRISTOL-MYERS SQUIBB COMPANY-15767924

PATIENT
  Sex: Female

DRUGS (3)
  1. ROCEPHIN [Concomitant]
     Route: 042
     Dates: start: 20110509, end: 20110515
  2. PAROXETINE HCL [Concomitant]
     Dates: start: 20080808
  3. SPRYCEL [Suspect]
     Indication: CHRONIC MYELOID LEUKAEMIA
     Route: 048
     Dates: start: 20080920, end: 20110510

REACTIONS (2)
  - ASCITES [None]
  - HEPATIC VEIN OCCLUSION [None]
